FAERS Safety Report 4731918-8 (Version None)
Quarter: 2005Q3

REPORT INFORMATION
  Report Type: 
  Country: None (occurrence: None)
  Receive Date: 20050801
  Receipt Date: 20050801
  Transmission Date: 20060218
  Serious: No
  Sender: FDA-Public Use
  Company Number: None

PATIENT
  Age: 49 Year
  Sex: Female
  Weight: 98.8842 kg

DRUGS (15)
  1. XOLAIR [Suspect]
     Indication: ASTHMA
     Dosage: 75 MG SUBCUTANEOUSLY
     Route: 058
     Dates: start: 20050406
  2. PREDNISONE [Concomitant]
  3. LISINOPRIL [Concomitant]
  4. LEVOTHYROXINE [Concomitant]
  5. PROTONIX [Concomitant]
  6. GLYBURIDE [Concomitant]
  7. AVANDIA [Concomitant]
  8. LIPITOR [Concomitant]
  9. INSULIN [Concomitant]
  10. ADVAIR DISKUS 100/50 [Concomitant]
  11. XOPENEX [Concomitant]
  12. SINGULAIR [Concomitant]
  13. EFFEXOR [Concomitant]
  14. ALPRAZOLAM [Concomitant]
  15. TRAZODONE HCL [Concomitant]

REACTIONS (3)
  - ADVERSE DRUG REACTION [None]
  - INJECTION SITE PRURITUS [None]
  - PRURITUS [None]
